FAERS Safety Report 7563701-2 (Version None)
Quarter: 2011Q2

REPORT INFORMATION
  Report Type: 
  Country: None (occurrence: None)
  Receive Date: 20110621
  Receipt Date: 20110621
  Transmission Date: 20111010
  Serious: Yes (Life-Threatening, Hospitalization)
  Sender: FDA-Public Use
  Company Number: None

PATIENT
  Age: 33 Year
  Sex: Female
  Weight: 63.5036 kg

DRUGS (2)
  1. METHOTREXATE [Suspect]
  2. METHOTREXATE [Suspect]
     Indication: CHORIOCARCINOMA
     Dosage: ADMINISTERED BY CHEMO NURSE FIRST TIME INTRA-ARTERIAL
     Route: 013
     Dates: start: 20100731, end: 20100731

REACTIONS (19)
  - DRUG EXPOSURE DURING PREGNANCY [None]
  - BLOOD ELECTROLYTES ABNORMAL [None]
  - THROMBOSIS [None]
  - ACUTE LUNG INJURY [None]
  - INJECTION SITE REACTION [None]
  - KIDNEY FIBROSIS [None]
  - WOUND [None]
  - HAEMORRHAGE [None]
  - ACUTE RESPIRATORY DISTRESS SYNDROME [None]
  - TRICUSPID VALVE INCOMPETENCE [None]
  - PHLEBITIS [None]
  - SPLENIC INFARCTION [None]
  - RESPIRATORY FAILURE [None]
  - ANGIOPATHY [None]
  - PULMONARY HAEMORRHAGE [None]
  - PNEUMOTHORAX [None]
  - SWELLING [None]
  - SKIN MASS [None]
  - CARDIOVASCULAR DISORDER [None]
